FAERS Safety Report 19843736 (Version 11)
Quarter: 2022Q3

REPORT INFORMATION
  Report Type: Report from Study
  Country: US (occurrence: US)
  Receive Date: 20210917
  Receipt Date: 20220920
  Transmission Date: 20221027
  Serious: Yes (Hospitalization)
  Sender: FDA-Public Use
  Company Number: US-NOVARTISTESTPH-NVSC2021US205499

PATIENT
  Age: 47 Year
  Sex: Female
  Weight: 68.027 kg

DRUGS (6)
  1. TREPROSTINIL [Suspect]
     Active Substance: TREPROSTINIL
     Indication: Pulmonary arterial hypertension
     Dosage: 82 NG/KG/MIN, CONT
     Route: 058
     Dates: start: 20210820
  2. TREPROSTINIL [Suspect]
     Active Substance: TREPROSTINIL
     Dosage: 82 NG/KG/MIN, CONT
     Route: 058
  3. TREPROSTINIL [Suspect]
     Active Substance: TREPROSTINIL
     Dosage: 82 NG/KG/MIN, CONT
     Route: 058
  4. OPSUMIT [Suspect]
     Active Substance: MACITENTAN
     Indication: Product used for unknown indication
     Dosage: UNK
     Route: 065
  5. WARFARIN [Concomitant]
     Active Substance: WARFARIN
     Indication: Product used for unknown indication
     Dosage: UNK
     Route: 065
  6. REMODULIN [Concomitant]
     Active Substance: TREPROSTINIL
     Indication: Product used for unknown indication
     Dosage: UNK
     Route: 065

REACTIONS (6)
  - Sickle cell anaemia [Unknown]
  - Sickle cell anaemia with crisis [Unknown]
  - Pulmonary hypertension [Unknown]
  - Dizziness [Unknown]
  - Infusion site pain [Unknown]
  - Injection site irritation [Unknown]

NARRATIVE: CASE EVENT DATE: 20211102
